FAERS Safety Report 18848964 (Version 2)
Quarter: 2021Q2

REPORT INFORMATION
  Report Type: Spontaneous
  Country: AU (occurrence: AU)
  Receive Date: 20210204
  Receipt Date: 20210625
  Transmission Date: 20210717
  Serious: Yes (Hospitalization, Other)
  Sender: FDA-Public Use
  Company Number: AU-INDIVIOR EUROPE LIMITED-INDV-128167-2021

PATIENT
  Age: 65 Year
  Sex: Female

DRUGS (14)
  1. METHADONE [Suspect]
     Active Substance: METHADONE HYDROCHLORIDE
     Indication: DRUG DEPENDENCE
     Dosage: UNK
     Route: 065
  2. DIAZEPAM. [Suspect]
     Active Substance: DIAZEPAM
     Dosage: 10 MG TDS
     Route: 065
     Dates: start: 2017
  3. CLONIDINE. [Concomitant]
     Active Substance: CLONIDINE
     Dosage: TWICE A DAY, TOTAL DOSES OF 100 MCG/DAY
     Route: 065
     Dates: start: 201410
  4. METHADONE [Suspect]
     Active Substance: METHADONE HYDROCHLORIDE
     Indication: PAIN
     Dosage: 40 MG
     Route: 065
     Dates: start: 2017
  5. CLONIDINE. [Concomitant]
     Active Substance: CLONIDINE
     Indication: PRODUCT USED FOR UNKNOWN INDICATION
     Dosage: THREE TIMES A DAY, TOTAL OF 600MCG/DAY
     Route: 065
     Dates: start: 201403
  6. DIAZEPAM. [Suspect]
     Active Substance: DIAZEPAM
     Indication: PRODUCT USED FOR UNKNOWN INDICATION
     Dosage: UNK
     Route: 065
  7. BUPRENORPHINE. [Suspect]
     Active Substance: BUPRENORPHINE
     Dosage: 6 MG AT 102 H POST ADMISSION
     Route: 065
     Dates: start: 2017
  8. KETAMINE [Concomitant]
     Active Substance: KETAMINE
     Indication: PAIN
     Dosage: 2 MG/HR AND INCREASED UP TO 24 MG/HR OVER 2 DAYS
     Route: 065
     Dates: start: 2017
  9. BUPRENORPHINE. [Suspect]
     Active Substance: BUPRENORPHINE
     Indication: DRUG USE DISORDER
     Dosage: UNK
     Route: 065
     Dates: start: 201403
  10. BUPRENORPHINE. [Suspect]
     Active Substance: BUPRENORPHINE
     Dosage: 4 MG
     Route: 065
     Dates: start: 2017
  11. BUPRENORPHINE. [Suspect]
     Active Substance: BUPRENORPHINE
     Dosage: 2 MG AT 32 AND AGAIN AT 34 H POST ADMISSION
     Route: 060
     Dates: start: 2017
  12. BUPRENORPHINE. [Suspect]
     Active Substance: BUPRENORPHINE
     Dosage: 32 MG
     Route: 065
     Dates: start: 2017
  13. KETAMINE [Concomitant]
     Active Substance: KETAMINE
     Indication: HYPERAESTHESIA
     Dosage: 6 MILLIGRAM (PER HOUR)
     Route: 065
     Dates: start: 201403
  14. BUPRENORPHINE TRANSDERMAL SYSTEM [Suspect]
     Active Substance: BUPRENORPHINE
     Indication: DRUG USE DISORDER
     Dosage: UNK
     Route: 065
     Dates: start: 201410

REACTIONS (2)
  - Stress cardiomyopathy [Unknown]
  - Drug withdrawal syndrome [Unknown]
